FAERS Safety Report 6207132-6 (Version None)
Quarter: 2009Q2

REPORT INFORMATION
  Report Type: 
  Country: None (occurrence: None)
  Receive Date: 20090528
  Receipt Date: 20090114
  Transmission Date: 20091009
  Serious: Yes (Hospitalization, Other)
  Sender: FDA-Public Use
  Company Number: JP-PFIZER INC-2009156545

PATIENT
  Age: 75 Year
  Sex: Male
  Weight: 54 kg

DRUGS (12)
  1. METHYLPREDNISOLONE AND METHYLPREDNISOLONE ACETATE AND METHYLPREDNISOLO [Suspect]
     Indication: ASTHMA
     Dosage: 80 MG, 3X/DAY
     Route: 042
     Dates: start: 20060612, end: 20060601
  2. PREDNISOLONE AND PREDNISOLONE STEAGLATE [Suspect]
     Dosage: 10 MG, 1X/DAY
     Dates: start: 20060608, end: 20060611
  3. CEFOTIAM HYDROCHLORIDE [Concomitant]
     Indication: PNEUMONIA
     Dosage: UNK
     Dates: start: 20060605
  4. CEFPODOXIME PROXETIL [Concomitant]
     Indication: PNEUMONIA
     Dosage: UNK
     Dates: start: 20060605
  5. CEFEPIME DIHYDROCHLORIDE HYDRATE [Concomitant]
     Indication: PNEUMONIA
     Dosage: UNK
     Route: 042
     Dates: start: 20060605
  6. PROCATEROL HCL [Concomitant]
     Dosage: UNK
     Dates: start: 20060601
  7. DEXAMETHASONE 4MG TAB [Concomitant]
     Dosage: UNK
     Route: 042
     Dates: start: 20060601
  8. FLUTICASONE PROPIONATE [Concomitant]
     Dosage: 800 UNK, UNK
  9. SALMETEROL XINAFOATE [Concomitant]
  10. TIOTROPIUM BROMIDE [Concomitant]
  11. THEOPHYLLINE [Concomitant]
     Dosage: 400 MG, 1X/DAY
  12. PRANLUKAST HYDRATE [Concomitant]
     Dosage: 450 MG, 1X/DAY

REACTIONS (2)
  - NOCARDIOSIS [None]
  - WHITE BLOOD CELL COUNT INCREASED [None]
